FAERS Safety Report 15736936 (Version 1)
Quarter: 2018Q4

REPORT INFORMATION
  Report Type: Spontaneous
  Country: DE (occurrence: DE)
  Receive Date: 20181218
  Receipt Date: 20181218
  Transmission Date: 20190205
  Serious: Yes (Other)
  Sender: FDA-Public Use
  Company Number: DE-BAUSCH-BL-2018-035090

PATIENT
  Sex: Male

DRUGS (2)
  1. KYNTHEUM [Suspect]
     Active Substance: BRODALUMAB
     Route: 058
     Dates: start: 20181202
  2. KYNTHEUM [Suspect]
     Active Substance: BRODALUMAB
     Indication: PSORIASIS
     Route: 058
     Dates: end: 20181016

REACTIONS (2)
  - Hepatitis E [Not Recovered/Not Resolved]
  - Psoriasis [Not Recovered/Not Resolved]
